FAERS Safety Report 21205761 (Version 1)
Quarter: 2022Q3

REPORT INFORMATION
  Report Type: Spontaneous
  Country: CN (occurrence: CN)
  Receive Date: 20220812
  Receipt Date: 20220812
  Transmission Date: 20221027
  Serious: Yes (Other)
  Sender: FDA-Public Use
  Company Number: CN-SUN PHARMACEUTICAL INDUSTRIES LTD-2022R1-348294

PATIENT
  Age: 60 Year
  Sex: Female

DRUGS (2)
  1. PRAMIPEXOLE [Suspect]
     Active Substance: PRAMIPEXOLE
     Indication: Parkinson^s disease
     Dosage: .25 MILLIGRAM, QID
     Route: 065
  2. Madopa [Concomitant]
     Indication: Parkinson^s disease
     Dosage: 1 DOSAGE FORM, QID
     Route: 065

REACTIONS (4)
  - Psychomotor hyperactivity [Unknown]
  - Insomnia [Unknown]
  - Dyskinesia [Unknown]
  - Constipation [Unknown]
